FAERS Safety Report 8069594-1 (Version None)
Quarter: 2012Q1

REPORT INFORMATION
  Report Type: 
  Country: None (occurrence: None)
  Receive Date: 20120125
  Receipt Date: 20120119
  Transmission Date: 20120608
  Serious: Yes (Other)
  Sender: FDA-Public Use
  Company Number: US-SANOFI-AVENTIS-2011SA027975

PATIENT
  Age: 68 Year
  Sex: Male
  Weight: 82 kg

DRUGS (20)
  1. SEROQUEL [Concomitant]
  2. WELLBUTRIN [Concomitant]
  3. QUETIAPINE [Concomitant]
  4. ATENOLOL [Concomitant]
  5. TAMSULOSIN HCL [Concomitant]
     Dosage: 2 X 0.4 MG TABLETS IN THE EVENING
     Route: 048
  6. PRAVASTATIN [Concomitant]
  7. MULTI-VITAMINS [Concomitant]
  8. PLAVIX [Suspect]
     Route: 048
     Dates: start: 20110101, end: 20110101
  9. POTASSIUM CHLORIDE [Concomitant]
  10. HYDROCHLOROTHIAZIDE [Concomitant]
  11. AMLODIPINE [Concomitant]
  12. ANTIHYPERTENSIVES [Concomitant]
     Indication: BLOOD PRESSURE
  13. PLAVIX [Suspect]
     Route: 048
     Dates: start: 20110101
  14. MINOXIDIL [Concomitant]
  15. ALL OTHER THERAPEUTIC PRODUCTS [Concomitant]
     Indication: DEPRESSION
  16. PLAVIX [Suspect]
     Route: 048
     Dates: start: 20010101, end: 20110101
  17. PLAVIX [Suspect]
     Route: 048
     Dates: start: 20110101, end: 20110101
  18. CLONAZEPAM [Concomitant]
  19. VENLAFAXINE [Concomitant]
  20. ZIPRASIDONE HYDROCHLORIDE [Concomitant]

REACTIONS (5)
  - PERIPHERAL NERVE DECOMPRESSION [None]
  - EAR HAEMORRHAGE [None]
  - HAEMORRHAGE [None]
  - POST PROCEDURAL HAEMORRHAGE [None]
  - HAEMARTHROSIS [None]
